FAERS Safety Report 6050954-5 (Version None)
Quarter: 2009Q1

REPORT INFORMATION
  Report Type: 
  Country: None (occurrence: None)
  Receive Date: 20090126
  Receipt Date: 20080815
  Transmission Date: 20090719
  Serious: No
  Sender: FDA-Public Use
  Company Number: US-TYCO HEALTHCARE/MALLINCKRODT-T200801409

PATIENT

DRUGS (3)
  1. OPTIRAY 300 [Suspect]
     Indication: COMPUTERISED TOMOGRAM
     Dosage: 125 ML, SINGLE
     Dates: start: 20080813, end: 20080813
  2. PREDNISONE TAB [Concomitant]
     Indication: PREMEDICATION
     Dosage: 12 HOURS PRIOR TO THE PROCEDURE
     Route: 048
     Dates: start: 20080801, end: 20080801
  3. PREDNISONE TAB [Concomitant]
     Dosage: ONE HOUR PRIOR TO THE PROCEDURE
     Route: 048
     Dates: start: 20080801, end: 20080801

REACTIONS (2)
  - LACRIMATION INCREASED [None]
  - OCULAR HYPERAEMIA [None]
